FAERS Safety Report 11390687 (Version 1)
Quarter: 2015Q3

REPORT INFORMATION
  Report Type: Spontaneous
  Country: US (occurrence: US)
  Receive Date: 20150818
  Receipt Date: 20150818
  Transmission Date: 20151125
  Serious: Yes (Hospitalization)
  Sender: FDA-Public Use
  Company Number: US-ROCHE-1412982

PATIENT
  Age: 65 Year
  Sex: Female

DRUGS (4)
  1. SOFOSBUVIR [Suspect]
     Active Substance: SOFOSBUVIR
     Indication: CHRONIC HEPATITIS C
     Route: 065
     Dates: start: 20140311
  2. PEGASYS [Suspect]
     Active Substance: PEGINTERFERON ALFA-2A
     Indication: CHRONIC HEPATITIS C
     Route: 065
     Dates: start: 20140311, end: 20140527
  3. RIBAVIRIN. [Suspect]
     Active Substance: RIBAVIRIN
     Indication: CHRONIC HEPATITIS C
     Route: 065
     Dates: start: 20140311
  4. LORATADIN [Concomitant]
     Active Substance: LORATADINE
     Route: 065

REACTIONS (4)
  - Rash pustular [Recovering/Resolving]
  - Dyspnoea [Unknown]
  - Thyroid hormones increased [Unknown]
  - Hypertension [Unknown]

NARRATIVE: CASE EVENT DATE: 20140527
